FAERS Safety Report 6102563-7 (Version None)
Quarter: 2009Q1

REPORT INFORMATION
  Report Type: 
  Country: None (occurrence: None)
  Receive Date: 20090304
  Receipt Date: 20080822
  Transmission Date: 20090719
  Serious: No
  Sender: FDA-Public Use
  Company Number: A0743978A

PATIENT
  Age: 66 Year
  Sex: Male

DRUGS (4)
  1. REQUIP [Suspect]
     Indication: PARKINSON'S DISEASE
     Route: 048
     Dates: start: 19990101, end: 20030101
  2. SOTALOL HCL [Concomitant]
  3. CHOLESTEROL REDUCING AGENT [Concomitant]
  4. ASPIRIN [Concomitant]

REACTIONS (1)
  - SOMNOLENCE [None]
